FAERS Safety Report 4492096-6 (Version None)
Quarter: 2004Q3

REPORT INFORMATION
  Report Type: 
  Country: None (occurrence: None)
  Receive Date: 20040924
  Receipt Date: 20040715
  Transmission Date: 20050211
  Serious: Yes (Life-Threatening, Hospitalization)
  Sender: FDA-Public Use
  Company Number: 04P-163-0267201-00

PATIENT
  Age: 50 Year
  Sex: Male

DRUGS (18)
  1. KALETRA [Suspect]
     Indication: HIV INFECTION
     Dosage: 1 DOSAGE FORMS, 2 IN 1 D
     Dates: start: 20031021, end: 20040605
  2. STAVUDINE [Suspect]
     Indication: HIV INFECTION
     Dosage: 100 MG, 1 IN 1 D
     Dates: start: 20031021, end: 20040605
  3. EMTRICITABINE [Suspect]
     Indication: HIV INFECTION
     Dosage: 200 MG, 1 IN 1 D
     Dates: start: 20031021, end: 20040605
  4. VICODIN [Concomitant]
  5. FLUCONAZOLE [Concomitant]
  6. BACTIM DS (BACTRIM) [Concomitant]
  7. AZITHROMYCIN [Concomitant]
  8. PARACETAMOL [Concomitant]
  9. PROMETHAZINE [Concomitant]
  10. METHADONE HCL [Concomitant]
  11. DEXAMETHASONE [Concomitant]
  12. FLUDROCORTISONE ACETATE [Concomitant]
  13. DRONABINOL [Concomitant]
  14. MULTI-VITAMINS [Concomitant]
  15. VALGANCICLOVIR [Concomitant]
  16. SALBUTAMOL [Concomitant]
  17. OMEPRAZOLE [Concomitant]
  18. IMODIUM [Concomitant]

REACTIONS (4)
  - ASPARTATE AMINOTRANSFERASE INCREASED [None]
  - HEADACHE [None]
  - NAUSEA [None]
  - VOMITING [None]
